FAERS Safety Report 4303252-1 (Version None)
Quarter: 2004Q1

REPORT INFORMATION
  Report Type: 
  Country: None (occurrence: None)
  Receive Date: 20040223
  Receipt Date: 20040211
  Transmission Date: 20041129
  Serious: Yes (Life-Threatening, Hospitalization, Other)
  Sender: FDA-Public Use
  Company Number: 1343-13196

PATIENT
  Age: 34 Year
  Sex: Female
  Weight: 50 kg

DRUGS (9)
  1. VIRACEPT [Suspect]
     Indication: HIV TEST POSITIVE
     Dosage: ORAL
     Route: 048
     Dates: start: 19980101
  2. NEVIRAPINE (NEVIRAPINE) [Suspect]
     Indication: HIV TEST POSITIVE
     Dosage: ORAL
     Route: 048
     Dates: start: 19980101
  3. SAQUINAVIR MESILATE (SAQUINAVIR MESILATE) [Suspect]
     Indication: HIV TEST POSITIVE
     Dosage: ORAL
     Route: 048
     Dates: start: 19970101
  4. INDINAVIR SULFATE (INDINAVIR SULFATE) [Suspect]
     Indication: HIV TEST POSITIVE
     Dosage: ORAL
     Route: 048
     Dates: start: 19971101
  5. STAVUDINE (STAVUDINE) [Concomitant]
  6. LAMIVUDINE (LAMIVUDINE) [Concomitant]
  7. ABACAVIR SULFATE (ABACAVIR SULFATE) [Concomitant]
  8. DIDANOSINE (DIDANOSINE) [Concomitant]
  9. EUGYNON (ETHINYLESTRADIOL, LEVONORGESTREL) [Concomitant]

REACTIONS (8)
  - ACUTE PULMONARY OEDEMA [None]
  - BLOOD CHOLESTEROL INCREASED [None]
  - CORONARY ARTERY THROMBOSIS [None]
  - ECHOCARDIOGRAM ABNORMAL [None]
  - HYPERTRIGLYCERIDAEMIA [None]
  - LEFT VENTRICULAR FAILURE [None]
  - MYOCARDIAL INFARCTION [None]
  - VENTRICULAR TACHYCARDIA [None]
